FAERS Safety Report 16902055 (Version 1)
Quarter: 2019Q4

REPORT INFORMATION
  Report Type: Spontaneous
  Country: US (occurrence: US)
  Receive Date: 20191010
  Receipt Date: 20191010
  Transmission Date: 20200122
  Serious: Yes (Hospitalization, Other)
  Sender: FDA-Public Use
  Company Number: US-APOTEX-2019AP023318

PATIENT
  Age: 49 Year
  Sex: Female

DRUGS (8)
  1. BIVALIRUDIN. [Suspect]
     Active Substance: BIVALIRUDIN
     Dosage: 50 MG, UNK
     Route: 065
  2. BIVALIRUDIN. [Suspect]
     Active Substance: BIVALIRUDIN
     Dosage: 1.5 MG/KG, Q.H., INFUSION
     Route: 065
  3. BIVALIRUDIN. [Suspect]
     Active Substance: BIVALIRUDIN
     Indication: ANTICOAGULANT THERAPY
     Dosage: 1.5 MG/KG, UNK, BOLUS
     Route: 040
  4. DIGOXIN. [Suspect]
     Active Substance: DIGOXIN
     Indication: CARDIOMYOPATHY
     Dosage: UNK
     Route: 065
  5. BIVALIRUDIN. [Suspect]
     Active Substance: BIVALIRUDIN
     Dosage: 50 MG, UNK (0.5 MCG/KG)
     Route: 065
  6. BIVALIRUDIN. [Suspect]
     Active Substance: BIVALIRUDIN
     Dosage: 2.5 MG/KG, Q.H., INFUSION
     Route: 042
  7. MILRINONE [Suspect]
     Active Substance: MILRINONE
     Indication: CARDIOMYOPATHY
     Dosage: UNK
     Route: 065
  8. ARGATROBAN. [Concomitant]
     Active Substance: ARGATROBAN
     Indication: ANTICOAGULANT THERAPY
     Dosage: UNK
     Route: 065

REACTIONS (3)
  - Mediastinal haemorrhage [Recovered/Resolved]
  - Coagulopathy [Recovered/Resolved]
  - Drug ineffective [Unknown]
